FAERS Safety Report 21324480 (Version 1)
Quarter: 2022Q3

REPORT INFORMATION
  Report Type: Spontaneous
  Country: CN (occurrence: CN)
  Receive Date: 20220912
  Receipt Date: 20220912
  Transmission Date: 20221027
  Serious: Yes (Life-Threatening, Other)
  Sender: FDA-Public Use
  Company Number: CN-OTSUKA-2022_044527

PATIENT
  Age: 88 Year
  Sex: Female
  Weight: 58 kg

DRUGS (1)
  1. SAMSCA [Suspect]
     Active Substance: TOLVAPTAN
     Indication: Angina unstable
     Dosage: 15 MG, QD
     Route: 048
     Dates: start: 20220509, end: 20220512

REACTIONS (2)
  - Hypernatraemia [Recovering/Resolving]
  - Product use in unapproved indication [Unknown]

NARRATIVE: CASE EVENT DATE: 20220509
